FAERS Safety Report 11898211 (Version 1)
Quarter: 2016Q1

REPORT INFORMATION
  Report Type: Spontaneous
  Country: US (occurrence: US)
  Receive Date: 20160108
  Receipt Date: 20160108
  Transmission Date: 20160526
  Serious: Yes (Life-Threatening, Hospitalization)
  Sender: FDA-Public Use
  Company Number: US-WATSON-2015-28954

PATIENT
  Age: 51 Year
  Sex: Male

DRUGS (4)
  1. HEPARIN [Suspect]
     Active Substance: HEPARIN SODIUM
     Indication: ANGIOGRAM CEREBRAL
     Dosage: TOTAL OF 8 DOSES OF 5000 UNITS OF HEPARIN OVER 3 DAYS
     Route: 058
  2. HEPARIN [Suspect]
     Active Substance: HEPARIN SODIUM
     Indication: DEEP VEIN THROMBOSIS
     Dosage: TOTAL OF 8 DOSES OF 5000 UNITS OF HEPARIN OVER 3 DAYS
     Route: 013
  3. HEPARIN [Suspect]
     Active Substance: HEPARIN SODIUM
     Dosage: HEPARIN DRIP WAS INITIATED
     Route: 041
  4. HEPARIN [Suspect]
     Active Substance: HEPARIN SODIUM
     Dosage: RESUMED ON DAY 10 OF HOSPITALISATION
     Route: 058

REACTIONS (3)
  - Heparin-induced thrombocytopenia [Recovering/Resolving]
  - Disseminated intravascular coagulation [Recovering/Resolving]
  - Haemorrhage [Recovering/Resolving]
